FAERS Safety Report 10064182 (Version 1)
Quarter: 2014Q2

REPORT INFORMATION
  Report Type: Spontaneous
  Country: US (occurrence: None)
  Receive Date: 20140407
  Receipt Date: 20140407
  Transmission Date: 20141212
  Serious: Yes (Other)
  Sender: FDA-Public Use
  Company Number: None

PATIENT
  Age: 74 Year
  Sex: Female

DRUGS (2)
  1. AFINITOR [Suspect]
     Indication: BREAST CANCER FEMALE
     Route: 048
     Dates: start: 20131204
  2. AFINITOR [Suspect]
     Indication: METASTASES TO LIVER
     Route: 048
     Dates: start: 20131204

REACTIONS (5)
  - Decreased appetite [None]
  - Dysgeusia [None]
  - Fatigue [None]
  - Hepatic cancer [None]
  - Gallbladder cancer [None]
